FAERS Safety Report 8948144 (Version 1)
Quarter: 2012Q4

REPORT INFORMATION
  Report Type: 
  Country: US (occurrence: US)
  Receive Date: 20121204
  Receipt Date: 20121204
  Transmission Date: 20130627
  Serious: No
  Sender: FDA-Public Use
  Company Number: US-ASTRAZENECA-2012SE86203

PATIENT
  Age: 11 Year
  Sex: Male

DRUGS (4)
  1. SEROQUEL [Suspect]
     Indication: ANXIETY
     Route: 048
     Dates: start: 201201
  2. CONCERTA [Suspect]
     Indication: ATTENTION DEFICIT/HYPERACTIVITY DISORDER
     Route: 048
     Dates: start: 201201
  3. ZOLOFT [Suspect]
     Indication: ANXIETY
     Route: 048
     Dates: start: 201201
  4. KAPVAY [Suspect]
     Indication: ATTENTION DEFICIT/HYPERACTIVITY DISORDER

REACTIONS (4)
  - Tremor [Recovered/Resolved]
  - Tremor [Recovered/Resolved]
  - Drug dose omission [Unknown]
  - Off label use [Unknown]
